FAERS Safety Report 20114345 (Version 2)
Quarter: 2021Q4

REPORT INFORMATION
  Report Type: Spontaneous
  Country: FR (occurrence: FR)
  Receive Date: 20211125
  Receipt Date: 20211210
  Transmission Date: 20220303
  Serious: Yes (Other)
  Sender: FDA-Public Use
  Company Number: FR-009507513-2111FRA005508

PATIENT
  Age: 59 Year
  Sex: Male

DRUGS (8)
  1. POSACONAZOLE [Interacting]
     Active Substance: POSACONAZOLE
     Indication: Mycetoma mycotic
     Dosage: 300 MILLIGRAM, BID (AT FIRST DAY)
  2. POSACONAZOLE [Interacting]
     Active Substance: POSACONAZOLE
     Dosage: 300 MILLIGRAM, QD
  3. POSACONAZOLE [Interacting]
     Active Substance: POSACONAZOLE
     Dosage: 200 MILLIGRAM, QD
  4. RIFABUTIN [Interacting]
     Active Substance: RIFABUTIN
     Indication: Tuberculosis
     Dosage: 150 MILLIGRAM, QD
  5. RIFABUTIN [Interacting]
     Active Substance: RIFABUTIN
     Dosage: 150 MILLIGRAM, QOD
  6. RIFABUTIN [Interacting]
     Active Substance: RIFABUTIN
     Dosage: 150 MG, 3 TIMES A WEEK
  7. TENOFOVIR [Concomitant]
     Active Substance: TENOFOVIR
     Indication: Hepatitis B
  8. ISONIAZID [Concomitant]
     Active Substance: ISONIAZID
     Indication: Tuberculosis

REACTIONS (3)
  - Hepatic cytolysis [Unknown]
  - Drug interaction [Unknown]
  - Drug ineffective [Unknown]
